FAERS Safety Report 24143358 (Version 1)
Quarter: 2024Q3

REPORT INFORMATION
  Report Type: Report from Study
  Country: IE (occurrence: IE)
  Receive Date: 20240726
  Receipt Date: 20240726
  Transmission Date: 20241016
  Serious: Yes (Other)
  Sender: GILEAD
  Company Number: IE-GILEAD-2023-0651011

PATIENT
  Sex: Female
  Weight: 69 kg

DRUGS (1)
  1. SACITUZUMAB GOVITECAN-HZIY [Suspect]
     Active Substance: SACITUZUMAB GOVITECAN-HZIY
     Indication: Product used for unknown indication
     Dosage: UNK
     Route: 065
     Dates: start: 20230922, end: 20240508

REACTIONS (3)
  - Disease progression [Unknown]
  - Weight decreased [Unknown]
  - Fatigue [Unknown]
